FAERS Safety Report 8040705-7 (Version None)
Quarter: 2012Q1

REPORT INFORMATION
  Report Type: 
  Country: None (occurrence: None)
  Receive Date: 20120111
  Receipt Date: 20111229
  Transmission Date: 20120608
  Serious: No
  Sender: FDA-Public Use
  Company Number: US-AMGEN-USASP2011060107

PATIENT
  Age: 49 Year
  Sex: Female

DRUGS (1)
  1. ENBREL [Suspect]
     Indication: PSORIASIS
     Dosage: 50 MG, 2 TIMES/WK
     Dates: start: 20111102, end: 20111120

REACTIONS (10)
  - FEELING JITTERY [None]
  - POSTOPERATIVE WOUND COMPLICATION [None]
  - PRURITUS [None]
  - PSORIASIS [None]
  - ENERGY INCREASED [None]
  - ERYTHEMA [None]
  - ADVERSE DRUG REACTION [None]
  - LOWER EXTREMITY MASS [None]
  - FEELING HOT [None]
  - INSOMNIA [None]
